FAERS Safety Report 6128902-9 (Version None)
Quarter: 2009Q1

REPORT INFORMATION
  Report Type: 
  Country: None (occurrence: None)
  Receive Date: 20090320
  Receipt Date: 20090312
  Transmission Date: 20090719
  Serious: Yes (Hospitalization)
  Sender: FDA-Public Use
  Company Number: 2009SP000687

PATIENT
  Age: 57 Year
  Sex: Female

DRUGS (7)
  1. LUNESTA [Suspect]
     Indication: INSOMNIA
     Dosage: 3 MG, PRN, ORAL
     Route: 048
  2. OXYMORPHONE HCL [Suspect]
     Indication: BACK PAIN
     Dosage: 10 MG; BID; ORAL
     Route: 048
     Dates: start: 20070619, end: 20090113
  3. OXYMORPHONE HCL [Suspect]
     Indication: PAIN
     Dosage: 5 MG; PRN; ORAL
     Route: 048
     Dates: start: 20070619, end: 20080414
  4. AMBIEN [Suspect]
     Indication: INSOMNIA
     Dosage: 10 MG; PRN; ORAL
     Route: 048
  5. XANAX [Suspect]
     Dosage: 1 MG; TID; ORAL, 1 MG; PRN; ORAL
     Route: 048
     Dates: end: 20080413
  6. PHENERGAN [Suspect]
     Indication: NAUSEA
     Dosage: 25 MG; PRN
  7. TOPAMAX [Suspect]
     Indication: NEURALGIA
     Dosage: 50 MG, BID; ORAL
     Route: 048

REACTIONS (5)
  - BLASTOCYSTIS INFECTION [None]
  - CLOSTRIDIUM DIFFICILE COLITIS [None]
  - DEPRESSED LEVEL OF CONSCIOUSNESS [None]
  - MULTIPLE DRUG OVERDOSE ACCIDENTAL [None]
  - URINARY TRACT INFECTION FUNGAL [None]
